FAERS Safety Report 15227504 (Version 3)
Quarter: 2018Q3

REPORT INFORMATION
  Report Type: Spontaneous
  Country: US (occurrence: US)
  Receive Date: 20180801
  Receipt Date: 20180813
  Transmission Date: 20181010
  Serious: Yes (Hospitalization, Other)
  Sender: FDA-Public Use
  Company Number: US-BIOMARINAP-US-2018-119121

PATIENT
  Age: 5 Year
  Sex: Female
  Weight: 16.9 kg

DRUGS (1)
  1. NAGLAZYME [Suspect]
     Active Substance: GALSULFASE
     Indication: PRODUCT USED FOR UNKNOWN INDICATION
     Dosage: UNK, QW
     Route: 042

REACTIONS (8)
  - Hypersensitivity [Unknown]
  - Dyspnoea [Unknown]
  - Rash erythematous [Unknown]
  - Abdominal pain [Unknown]
  - Vomiting [Unknown]
  - Pruritus [Recovering/Resolving]
  - Oedema [Unknown]
  - Urticaria [Recovering/Resolving]

NARRATIVE: CASE EVENT DATE: 2018
